FAERS Safety Report 6721315-8 (Version None)
Quarter: 2010Q2

REPORT INFORMATION
  Report Type: 
  Country: None (occurrence: None)
  Receive Date: 20100510
  Receipt Date: 20100503
  Transmission Date: 20101027
  Serious: Yes (Hospitalization)
  Sender: FDA-Public Use
  Company Number: 2010SP025188

PATIENT
  Age: 69 Year
  Sex: Male

DRUGS (4)
  1. DEXAMETHASONE [Suspect]
     Indication: PREMEDICATION
     Dosage: 8 MG; TID; IV
     Route: 042
     Dates: start: 20100212
  2. DOCETAXEL [Suspect]
     Indication: PROSTATE CANCER
     Dosage: 130 MG; Q3W; IV
     Route: 042
     Dates: start: 20100212
  3. PREDNISONE [Suspect]
     Indication: PROSTATE CANCER
     Dosage: 5 MG; BID; PO
     Route: 048
     Dates: start: 20100212
  4. DASATINIB (DASATINIB) [Suspect]
     Indication: PROSTATE CANCER
     Dosage: 100 MG; QD; PO
     Route: 048
     Dates: start: 20100212

REACTIONS (4)
  - NAUSEA [None]
  - PYREXIA [None]
  - VOMITING [None]
  - WHITE BLOOD CELL COUNT DECREASED [None]
